FAERS Safety Report 10557987 (Version 1)
Quarter: 2014Q4

REPORT INFORMATION
  Report Type: Spontaneous
  Country: US (occurrence: None)
  Receive Date: 20141030
  Receipt Date: 20141030
  Transmission Date: 20150529
  Serious: Yes (Hospitalization)
  Sender: FDA-Public Use
  Company Number: None

PATIENT
  Age: 62 Year
  Sex: Male
  Weight: 75.2 kg

DRUGS (3)
  1. LOSARTAN [Suspect]
     Active Substance: LOSARTAN
     Indication: DIABETES MELLITUS
     Route: 048
     Dates: start: 20140725, end: 20141012
  2. LOSARTAN [Suspect]
     Active Substance: LOSARTAN
     Indication: HYPERTENSION
     Route: 048
     Dates: start: 20140725, end: 20141012
  3. HYDROCHLOROTHIAZIDE/TRIAMTERENE [Suspect]
     Active Substance: HYDROCHLOROTHIAZIDE\TRIAMTERENE
     Indication: HYPERTENSION
     Route: 048
     Dates: start: 20141004, end: 20141012

REACTIONS (5)
  - Acute prerenal failure [None]
  - Acute kidney injury [None]
  - Renal tubular necrosis [None]
  - Asthenia [None]
  - Hypophagia [None]

NARRATIVE: CASE EVENT DATE: 20141010
